FAERS Safety Report 4848459-X (Version None)
Quarter: 2005Q4

REPORT INFORMATION
  Report Type: 
  Country: None (occurrence: None)
  Receive Date: 20051115
  Receipt Date: 20050815
  Transmission Date: 20060501
  Serious: No
  Sender: FDA-Public Use
  Company Number: S05-USA-04034-01

PATIENT
  Age: 78 Year
  Sex: Female

DRUGS (10)
  1. NAMENDA [Suspect]
     Indication: CONFUSIONAL STATE
     Dosage: 5 MG QD PO
     Route: 048
  2. NAMENDA [Suspect]
     Indication: CONFUSIONAL STATE
     Dosage: 5 MG BID PO
     Route: 048
  3. NAMENDA [Suspect]
     Indication: CONFUSIONAL STATE
     Dosage: 15 MG QD PO
     Route: 048
  4. NAMENDA [Suspect]
     Indication: CONFUSIONAL STATE
     Dosage: 10 MG BID PO
     Route: 048
  5. ZOLOFT [Concomitant]
  6. TRICOR [Concomitant]
  7. COUMADIN [Concomitant]
  8. LEVOXYL [Concomitant]
  9. OMEPRAZOLE [Concomitant]
  10. RANITIDINE [Concomitant]

REACTIONS (3)
  - AMNESIA [None]
  - COLD SWEAT [None]
  - CONFUSIONAL STATE [None]
